FAERS Safety Report 9913310 (Version 1)
Quarter: 2014Q1

REPORT INFORMATION
  Report Type: Spontaneous
  Country: US (occurrence: None)
  Receive Date: 20140218
  Receipt Date: 20140218
  Transmission Date: 20141002
  Serious: Yes (Disabling)
  Sender: FDA-Public Use
  Company Number: None

PATIENT
  Age: 91 Year
  Sex: Female
  Weight: 97 kg

DRUGS (2)
  1. LOVENOX [Suspect]
     Indication: PULMONARY EMBOLISM
     Route: 058
  2. METHYLPREDNISOLONE (DEPO MEDROL) [Concomitant]

REACTIONS (2)
  - Diplegia [None]
  - Haematoma [None]
